FAERS Safety Report 9171221 (Version 1)
Quarter: 2013Q1

REPORT INFORMATION
  Report Type: Spontaneous
  Country: US (occurrence: None)
  Receive Date: 20130312
  Receipt Date: 20130312
  Transmission Date: 20140127
  Serious: Yes (Other)
  Sender: FDA-Public Use
  Company Number: 2013AP003428

PATIENT
  Age: 48 Year
  Sex: 0

DRUGS (2)
  1. BUPROPION HYDROCHLORIDE TABLETS [Suspect]
     Route: 048
  2. CLONAZEPAM TABLETS, USP [Suspect]

REACTIONS (3)
  - Somnolence [None]
  - Polydipsia psychogenic [None]
  - Drug interaction [None]
